FAERS Safety Report 7973693 (Version 2)
Quarter: 2012Q4

REPORT INFORMATION
  Report Type: 
  Country: US (occurrence: US)
  Receive Date: 20110413
  Receipt Date: 20120906
  Transmission Date: 20130627
  Serious: Yes (Other)
  Sender: FDA-Public Use
  Company Number: US-DX529-2011DX000018

PATIENT
  Age: 49 Year
  Sex: Male
  Weight: 87.09 kg

DRUGS (2)
  1. KALBITOR [Suspect]
     Indication: HEREDITARY ANGIOEDEMA
     Dates: start: 20110308, end: 20110308
  2. NEXIUM                             /01479302/ [Concomitant]
     Indication: PRODUCT USED FOR UNKNOWN INDICATION
     Route: 048
     Dates: start: 201008

REACTIONS (8)
  - Anaphylactic reaction [Recovered/Resolved]
  - Electrocardiogram abnormal [Recovered/Resolved]
  - Fear [Recovered/Resolved]
  - Micturition urgency [Unknown]
  - Dizziness [Recovered/Resolved]
  - Hypopnoea [Recovered/Resolved]
  - Chest discomfort [Recovered/Resolved]
  - Flushing [Unknown]
